FAERS Safety Report 6395961-8 (Version None)
Quarter: 2009Q4

REPORT INFORMATION
  Report Type: 
  Country: None (occurrence: None)
  Receive Date: 20091009
  Receipt Date: 20091005
  Transmission Date: 20100525
  Serious: Yes (Life-Threatening, Hospitalization, Disabling)
  Sender: FDA-Public Use
  Company Number: US-CELGENEUS-163-21880-09051868

PATIENT
  Sex: Female

DRUGS (9)
  1. REVLIMID [Suspect]
     Indication: MULTIPLE MYELOMA
     Route: 048
     Dates: start: 20090206, end: 20090501
  2. REVLIMID [Suspect]
     Route: 048
     Dates: start: 20090601
  3. REVLIMID [Suspect]
     Route: 048
     Dates: start: 20080601
  4. COUMADIN [Concomitant]
     Route: 065
  5. SYNTHROID [Concomitant]
     Indication: DRUG USE FOR UNKNOWN INDICATION
     Route: 048
  6. TRIAMTERENE AND HYDROCHLOROTHIAZIDE [Concomitant]
     Indication: DRUG USE FOR UNKNOWN INDICATION
     Dosage: 37.5/25MG
     Route: 048
  7. CALCIUM [Concomitant]
     Route: 065
  8. FISH OIL [Concomitant]
     Indication: DRUG USE FOR UNKNOWN INDICATION
     Route: 065
  9. ATIVAN [Concomitant]
     Indication: DRUG USE FOR UNKNOWN INDICATION
     Route: 065

REACTIONS (9)
  - ASTHENIA [None]
  - BLOOD COUNT ABNORMAL [None]
  - DEHYDRATION [None]
  - EPISTAXIS [None]
  - EYE INFECTION [None]
  - PLATELET COUNT DECREASED [None]
  - PNEUMONIA [None]
  - VISUAL IMPAIRMENT [None]
  - WHITE BLOOD CELL COUNT DECREASED [None]
